FAERS Safety Report 9233627 (Version 1)
Quarter: 2013Q2

REPORT INFORMATION
  Report Type: Spontaneous
  Country: US (occurrence: US)
  Receive Date: 20130416
  Receipt Date: 20130416
  Transmission Date: 20140414
  Serious: No
  Sender: FDA-Public Use
  Company Number: US-BANPHARM-20130602

PATIENT
  Age: 46 Year
  Sex: Female
  Weight: 66.68 kg

DRUGS (1)
  1. ALEVE LIQUID GELS 220MG [Suspect]
     Indication: PAIN
     Dosage: 1 DF,
     Route: 048
     Dates: start: 201301, end: 20130121

REACTIONS (1)
  - Foreign body [Not Recovered/Not Resolved]
